FAERS Safety Report 7433738-2 (Version None)
Quarter: 2011Q2

REPORT INFORMATION
  Report Type: 
  Country: None (occurrence: None)
  Receive Date: 20110424
  Receipt Date: 20110419
  Transmission Date: 20111010
  Serious: No
  Sender: FDA-Public Use
  Company Number: US-B.I. PHARMACEUTICALS,INC./RIDGEFIELD-2011-BP-05309BP

PATIENT
  Age: 87 Year
  Sex: Male
  Weight: 69.1 kg

DRUGS (6)
  1. LIPITOR [Concomitant]
     Dosage: 10 MG
     Route: 048
     Dates: start: 20101123
  2. PRADAXA [Suspect]
     Dosage: 300 MG
     Dates: start: 20101101, end: 20110208
  3. MULTI-VITAMIN [Concomitant]
     Route: 048
     Dates: start: 20101123
  4. CALCIUM [Concomitant]
     Route: 048
  5. LISINOPRIL [Concomitant]
     Dosage: 10 MG
     Route: 048
     Dates: start: 20101123
  6. TOPROL-XL [Concomitant]
     Dosage: 50 MG
     Route: 048
     Dates: start: 20101123

REACTIONS (1)
  - HEADACHE [None]
